FAERS Safety Report 18896010 (Version 2)
Quarter: 2021Q4

REPORT INFORMATION
  Report Type: Spontaneous
  Country: IN (occurrence: IN)
  Receive Date: 20210216
  Receipt Date: 20211208
  Transmission Date: 20220304
  Serious: Yes (Life-Threatening, Hospitalization, Other)
  Sender: FDA-Public Use
  Company Number: None

PATIENT
  Age: 22 Year
  Sex: Female

DRUGS (2)
  1. ETHINYL ESTRADIOL\LEVONORGESTREL [Suspect]
     Active Substance: ETHINYL ESTRADIOL\LEVONORGESTREL
     Indication: Polycystic ovaries
     Dosage: 1 DOSAGE FORM, QD (0.15/30 MG/MCG)
     Route: 065
  2. MEDROXYPROGESTERONE ACETATE [Suspect]
     Active Substance: MEDROXYPROGESTERONE ACETATE
     Indication: Polycystic ovaries
     Dosage: 10 MILLIGRAM, QD, ONE TABLET DAILY FOR 3 TO 4 YEARS CONTINUOUSLY
     Route: 065

REACTIONS (5)
  - Acute myocardial infarction [Recovering/Resolving]
  - Thrombolysis [Recovering/Resolving]
  - Coronary artery stenosis [Recovering/Resolving]
  - Coronary artery occlusion [Recovering/Resolving]
  - Off label use [Unknown]
